FAERS Safety Report 25597557 (Version 1)
Quarter: 2025Q3

REPORT INFORMATION
  Report Type: Spontaneous
  Country: US (occurrence: None)
  Receive Date: 20250723
  Receipt Date: 20250723
  Transmission Date: 20251021
  Serious: Yes (Hospitalization)
  Sender: FDA-CTU
  Company Number: None

PATIENT
  Sex: Male

DRUGS (11)
  1. LENALIDOMIDE [Suspect]
     Active Substance: LENALIDOMIDE
     Indication: Plasma cell myeloma
  2. ATORVASTATIN [Concomitant]
     Active Substance: ATORVASTATIN
  3. DARZALEX SOL FASPRO [Concomitant]
  4. DEXAMETHASONE [Concomitant]
     Active Substance: DEXAMETHASONE
  5. FLUTIGASONE AER 50MGG [Concomitant]
  6. HYDROGO/APAP TAB 5-325MG [Concomitant]
  7. LATANOPROST SOL 0.005% [Concomitant]
  8. LENALIDOMIDE GAP 10MG [Concomitant]
  9. QVAR REDI HAL AER 40MGG [Concomitant]
  10. STOOL [Concomitant]
  11. VELCADE [Concomitant]
     Active Substance: BORTEZOMIB

REACTIONS (1)
  - Spinal operation [None]
